FAERS Safety Report 14740357 (Version 2)
Quarter: 2018Q2

REPORT INFORMATION
  Report Type: Report from Study
  Country: BR (occurrence: BR)
  Receive Date: 20180410
  Receipt Date: 20180418
  Transmission Date: 20180711
  Serious: Yes (Other)
  Sender: FDA-Public Use
  Company Number: PHHY2017BR190182

PATIENT
  Sex: Female
  Weight: 52 kg

DRUGS (2)
  1. AFINITOR [Suspect]
     Active Substance: EVEROLIMUS
     Indication: NEUROENDOCRINE TUMOUR
     Dosage: UNK, QD
     Route: 065
     Dates: start: 2013
  2. AFINITOR [Suspect]
     Active Substance: EVEROLIMUS
     Indication: HEPATIC CANCER
     Dosage: 1 DF, QD
     Route: 048

REACTIONS (7)
  - Stomatitis [Unknown]
  - Internal haemorrhage [Unknown]
  - Cataract [Not Recovered/Not Resolved]
  - Blindness [Not Recovered/Not Resolved]
  - Epistaxis [Recovering/Resolving]
  - Aphthous ulcer [Recovering/Resolving]
  - Cerebrovascular accident [Not Recovered/Not Resolved]
